FAERS Safety Report 6795453-8 (Version None)
Quarter: 2010Q2

REPORT INFORMATION
  Report Type: 
  Country: None (occurrence: None)
  Receive Date: 20100520
  Receipt Date: 20090924
  Transmission Date: 20101027
  Serious: Yes (Disabling, Other)
  Sender: FDA-Public Use
  Company Number: 2009240029

PATIENT
  Age: 53 Year
  Sex: Female

DRUGS (10)
  1. PROVERA [Suspect]
     Indication: HORMONE REPLACEMENT THERAPY
     Dosage: 10 MG, ORAL; 5 MG ORAL
     Route: 048
     Dates: end: 19960801
  2. PROVERA [Suspect]
     Indication: HORMONE REPLACEMENT THERAPY
     Dosage: 10 MG, ORAL; 5 MG ORAL
     Route: 048
     Dates: start: 19950901
  3. PREMARIN [Suspect]
     Indication: HORMONE REPLACEMENT THERAPY
     Dosage: 0.625 MG; 1.25 MG; 0.3 MG
     Dates: start: 19850901, end: 19960801
  4. PREMARIN [Suspect]
     Indication: HORMONE REPLACEMENT THERAPY
     Dosage: 0.625 MG; 1.25 MG; 0.3 MG
     Dates: start: 19980401, end: 19981001
  5. PREMARIN [Suspect]
     Indication: HORMONE REPLACEMENT THERAPY
     Dosage: 0.625 MG; 1.25 MG; 0.3 MG
     Dates: start: 19851201
  6. PREMPHASE (PREMARIN;CYCRIN 14/14) [Suspect]
     Indication: HORMONE REPLACEMENT THERAPY
     Dosage: 0.625/5 MG
     Dates: start: 19960801, end: 19980401
  7. PREMPRO [Suspect]
     Indication: HORMONE REPLACEMENT THERAPY
     Dosage: 0.625/2.5 MG
     Dates: start: 19961101, end: 19981201
  8. MEDROXYPROGESTERONE [Suspect]
     Indication: HORMONE REPLACEMENT THERAPY
     Dosage: 5 MG
     Dates: start: 19980301, end: 19981001
  9. ALDACTAZIDE [Concomitant]
  10. SYNTHROID (LEVOTHYROXINE SODUIM) [Concomitant]

REACTIONS (1)
  - BREAST CANCER FEMALE [None]
